FAERS Safety Report 6868937-1 (Version None)
Quarter: 2010Q3

REPORT INFORMATION
  Report Type: 
  Country: None (occurrence: None)
  Receive Date: 20100722
  Receipt Date: 20080922
  Transmission Date: 20110219
  Serious: No
  Sender: FDA-Public Use
  Company Number: US-PFIZER INC-2008052355

PATIENT
  Sex: Male
  Weight: 106.59 kg

DRUGS (2)
  1. CHANTIX [Suspect]
     Indication: SMOKING CESSATION THERAPY
     Route: 048
     Dates: start: 20070701, end: 20080601
  2. TRICOR [Concomitant]
     Indication: BLOOD CHOLESTEROL
     Route: 048

REACTIONS (8)
  - ANXIETY [None]
  - APATHY [None]
  - DEPRESSED MOOD [None]
  - DEPRESSION [None]
  - DRUG DOSE OMISSION [None]
  - INSOMNIA [None]
  - IRRITABILITY [None]
  - SOMNOLENCE [None]
